FAERS Safety Report 4802289-3 (Version None)
Quarter: 2005Q4

REPORT INFORMATION
  Report Type: 
  Country: None (occurrence: None)
  Receive Date: 20051012
  Receipt Date: 20050928
  Transmission Date: 20060501
  Serious: Yes (Hospitalization)
  Sender: FDA-Public Use
  Company Number: 218284

PATIENT
  Age: 68 Year
  Sex: Male
  Weight: 67.4 kg

DRUGS (11)
  1. AVASTIN [Suspect]
     Indication: COLON CANCER METASTATIC
     Dosage: 335 MG, Q2W, INTRAVENOUS
     Route: 042
  2. IRINOTECAN HCL [Suspect]
     Indication: COLON CANCER METASTATIC
     Dosage: 208 MG, INTRAVENOUS
     Route: 042
  3. FLUOROURACIL [Suspect]
     Indication: COLON CANCER METASTATIC
     Dosage: 3114 MG, INTRAVENOUS
     Route: 042
  4. LEUCOVORIN CALCIUM [Suspect]
     Indication: COLON CANCER METASTATIC
     Dosage: 346 MG, INTRAVENOUS
     Route: 042
  5. GLUCOVANCE (GLYBURIDE, METFORMIN) [Concomitant]
  6. TESSALON [Concomitant]
  7. IMODIUM [Concomitant]
  8. SYNTHROID [Concomitant]
  9. MORPHINE SULFATE IR (MORPHINE SULFATE) [Concomitant]
  10. LISINOPRIL [Concomitant]
  11. AVANDIA [Concomitant]

REACTIONS (15)
  - ANAEMIA [None]
  - BLOOD ALBUMIN DECREASED [None]
  - BLOOD GLUCOSE INCREASED [None]
  - BLOOD POTASSIUM DECREASED [None]
  - BLOOD SODIUM DECREASED [None]
  - BLOOD UREA INCREASED [None]
  - DYSPNOEA [None]
  - FATIGUE [None]
  - FEBRILE NEUTROPENIA [None]
  - INFLAMMATION [None]
  - OEDEMA PERIPHERAL [None]
  - ORAL INTAKE REDUCED [None]
  - PNEUMONIA [None]
  - PULMONARY EMBOLISM [None]
  - THROMBOSIS [None]
